FAERS Safety Report 9529912 (Version 3)
Quarter: 2013Q3

REPORT INFORMATION
  Report Type: Report from Study
  Country: DE (occurrence: CL)
  Receive Date: 20130917
  Receipt Date: 20130920
  Transmission Date: 20140515
  Serious: Yes (Other)
  Sender: FDA-Public Use
  Company Number: DE-ACTELION-A-NJ2013-88017

PATIENT
  Age: 45 Year
  Sex: Female

DRUGS (2)
  1. VENTAVIS [Suspect]
     Indication: PULMONARY HYPERTENSION
     Dosage: 5 MCG Q3H
     Route: 055
     Dates: start: 20130712
  2. OXYGEN [Concomitant]

REACTIONS (4)
  - Convulsion [Unknown]
  - Syncope [Unknown]
  - Dyspnoea [Unknown]
  - Tongue biting [Unknown]
